FAERS Safety Report 7618657-0 (Version None)
Quarter: 2011Q3

REPORT INFORMATION
  Report Type: 
  Country: None (occurrence: None)
  Receive Date: 20110718
  Receipt Date: 20110707
  Transmission Date: 20111222
  Serious: Yes (Hospitalization)
  Sender: FDA-Public Use
  Company Number: IE-BAYER-2011-049174

PATIENT
  Age: 25 Year
  Sex: Male

DRUGS (1)
  1. MAGNEVIST [Suspect]
     Indication: NUCLEAR MAGNETIC RESONANCE IMAGING
     Dosage: 36 ML, ONCE
     Route: 042
     Dates: start: 20110608, end: 20110608

REACTIONS (5)
  - URTICARIA [None]
  - DYSPNOEA [None]
  - OCULAR HYPERAEMIA [None]
  - FLUSHING [None]
  - SNEEZING [None]
